FAERS Safety Report 7306672-6 (Version None)
Quarter: 2011Q1

REPORT INFORMATION
  Report Type: 
  Country: None (occurrence: None)
  Receive Date: 20110209
  Receipt Date: 20110125
  Transmission Date: 20110831
  Serious: Yes (Hospitalization, Other)
  Sender: FDA-Public Use
  Company Number: CA-004378

PATIENT
  Sex: Male
  Weight: 82.5547 kg

DRUGS (10)
  1. METOPROLOL [Concomitant]
  2. ASA [Concomitant]
  3. LUPRON [Concomitant]
  4. WARFARIN SODIUM [Concomitant]
  5. FIRMAGON [Suspect]
     Indication: PROSTATE CANCER
     Dosage: (240 MG 1X SUBCUTANEOUS)
     Route: 058
     Dates: start: 20101117, end: 20101117
  6. DIGOXIN [Concomitant]
  7. PREDNISONE [Concomitant]
  8. CRESTOR [Concomitant]
  9. COUMADIN [Concomitant]
  10. COLACE [Concomitant]

REACTIONS (3)
  - FATIGUE [None]
  - MITRAL VALVE INCOMPETENCE [None]
  - CARDIAC FAILURE [None]
